FAERS Safety Report 6361908-3 (Version None)
Quarter: 2009Q3

REPORT INFORMATION
  Report Type: 
  Country: None (occurrence: None)
  Receive Date: 20090918
  Receipt Date: 20090917
  Transmission Date: 20100115
  Serious: Yes (Hospitalization)
  Sender: FDA-Public Use
  Company Number: GR-WYE-G04464809

PATIENT
  Age: 81 Year
  Sex: Male

DRUGS (1)
  1. TYGACIL [Suspect]
     Indication: FEBRILE INFECTION
     Dosage: 50 MG TWICE DAILY
     Route: 042
     Dates: start: 20090805, end: 20090813

REACTIONS (1)
  - HAEMOLYSIS [None]
